FAERS Safety Report 4876148-4 (Version None)
Quarter: 2005Q4

REPORT INFORMATION
  Report Type: 
  Country: None (occurrence: None)
  Receive Date: 20051205
  Receipt Date: 20050815
  Transmission Date: 20060501
  Serious: No
  Sender: FDA-Public Use
  Company Number: USA0508105460

PATIENT
  Age: 67 Year
  Sex: Female

DRUGS (3)
  1. ALIMTA [Suspect]
     Indication: NON-SMALL CELL LUNG CANCER
     Dates: start: 20050728
  2. VITAMIN B-12 [Concomitant]
  3. MULTI-VITAMIN [Concomitant]

REACTIONS (4)
  - BACK PAIN [None]
  - BLOOD COUNT ABNORMAL [None]
  - FAECES PALE [None]
  - FATIGUE [None]
